FAERS Safety Report 14390900 (Version 1)
Quarter: 2018Q1

REPORT INFORMATION
  Report Type: Report from Study
  Country: US (occurrence: US)
  Receive Date: 20180116
  Receipt Date: 20180116
  Transmission Date: 20180509
  Serious: No
  Sender: FDA-Public Use
  Company Number: PHEH2018US001926

PATIENT
  Age: 84 Year
  Sex: Female

DRUGS (1)
  1. GLEEVEC [Suspect]
     Active Substance: IMATINIB MESYLATE
     Dosage: 100 MG, BID
     Route: 048
     Dates: start: 20070927

REACTIONS (1)
  - Diarrhoea [Not Recovered/Not Resolved]
